FAERS Safety Report 22253167 (Version 1)
Quarter: 2023Q2

REPORT INFORMATION
  Report Type: Spontaneous
  Country: NL (occurrence: NL)
  Receive Date: 20230426
  Receipt Date: 20230426
  Transmission Date: 20230721
  Serious: Yes (Other)
  Sender: FDA-Public Use
  Company Number: None

PATIENT
  Sex: Male
  Weight: 95 kg

DRUGS (1)
  1. TRIAMCINOLONE ACETONIDE [Suspect]
     Active Substance: TRIAMCINOLONE ACETONIDE
     Indication: Skin discomfort
     Dosage: 3 DOSAGE FORMS DAILY;  3X A DAY  , BRAND NAME NOT SPECIFIED
     Dates: start: 20230224

REACTIONS (1)
  - Sperm concentration decreased [Not Recovered/Not Resolved]
